FAERS Safety Report 13350326 (Version 1)
Quarter: 2017Q1

REPORT INFORMATION
  Report Type: Spontaneous
  Country: US (occurrence: US)
  Receive Date: 20170317
  Receipt Date: 20170317
  Transmission Date: 20170429
  Serious: No
  Sender: FDA-Public Use
  Company Number: None

PATIENT
  Age: 62 Year
  Sex: Male

DRUGS (1)
  1. ADEFOVIR DIPIV TAB 10 MG [Suspect]
     Active Substance: ADEFOVIR DIPIVOXIL

REACTIONS (1)
  - Open fracture [None]

NARRATIVE: CASE EVENT DATE: 20170308
